FAERS Safety Report 8481470-9 (Version None)
Quarter: 2012Q3

REPORT INFORMATION
  Report Type: 
  Country: None (occurrence: None)
  Receive Date: 20120702
  Receipt Date: 20120621
  Transmission Date: 20120928
  Serious: Yes (Hospitalization)
  Sender: FDA-Public Use
  Company Number: DK-PFIZER INC-2012151577

PATIENT
  Age: 36 Year
  Sex: Female

DRUGS (6)
  1. ACETAMINOPHEN [Concomitant]
  2. IBUPROFEN [Concomitant]
  3. VFEND [Suspect]
     Indication: ASPERGILLOSIS
     Dosage: 200 MG, UNK
     Route: 048
     Dates: start: 20120516, end: 20120601
  4. SERTRALINE HYDROCHLORIDE [Concomitant]
  5. PANTOPRAZOL ^ACTAVIS^ [Concomitant]
  6. TRAMADOL HCL [Concomitant]

REACTIONS (3)
  - BACK PAIN [None]
  - MALAISE [None]
  - INFLUENZA LIKE ILLNESS [None]
